FAERS Safety Report 8777346 (Version 1)
Quarter: 2012Q4

REPORT INFORMATION
  Report Type: 
  Country: FR (occurrence: FR)
  Receive Date: 20120911
  Receipt Date: 20120911
  Transmission Date: 20130627
  Serious: Yes (Hospitalization)
  Sender: FDA-Public Use
  Company Number: FR-PFIZER INC-2012219608

PATIENT
  Age: 51 Year
  Sex: Female

DRUGS (2)
  1. AMLOR [Suspect]
     Dosage: UNK
     Route: 048
     Dates: start: 201001, end: 201004
  2. LASILIX [Suspect]
     Dosage: UNK
     Route: 048
     Dates: start: 201001, end: 201004

REACTIONS (1)
  - Leukocytoclastic vasculitis [Unknown]
